FAERS Safety Report 9262750 (Version 3)
Quarter: 2013Q2

REPORT INFORMATION
  Report Type: Spontaneous
  Country: FR (occurrence: FR)
  Receive Date: 20130430
  Receipt Date: 20130515
  Transmission Date: 20140414
  Serious: Yes (Hospitalization)
  Sender: FDA-Public Use
  Company Number: PHHY2013FR040666

PATIENT
  Age: 45 Year
  Sex: Female

DRUGS (6)
  1. ANAFRANIL [Suspect]
     Dosage: 75 MG, DAILY
     Route: 048
     Dates: start: 20130215, end: 20130217
  2. ANAFRANIL [Suspect]
     Dosage: 75 MG, BID
     Route: 048
     Dates: start: 20130218
  3. CLOZAPINE [Suspect]
     Dosage: UNK UKN, UNK
     Dates: start: 20130125
  4. CLOZAPINE [Suspect]
     Dosage: 500 MG, DAILY
     Dates: start: 20130227
  5. LAMICTAL [Suspect]
     Dosage: 25 MG, DAILY
     Dates: start: 20130222
  6. LAMICTAL [Suspect]
     Dosage: 50 MG, DAILY
     Dates: start: 20130301

REACTIONS (3)
  - Dysphemia [Unknown]
  - Dysarthria [Unknown]
  - Tremor [Unknown]
